FAERS Safety Report 5602086-5 (Version None)
Quarter: 2008Q1

REPORT INFORMATION
  Report Type: 
  Country: None (occurrence: None)
  Receive Date: 20080122
  Receipt Date: 20071231
  Transmission Date: 20080703
  Serious: Yes (Other)
  Sender: FDA-Public Use
  Company Number: ENT 2007-0180

PATIENT
  Age: 75 Year
  Sex: Female

DRUGS (3)
  1. COMTAN [Suspect]
     Indication: PARKINSON'S DISEASE
     Dosage: 300 MG ORAL : 500 MG ORAL : 400 MG ORAL
     Route: 048
     Dates: start: 20070709, end: 20070718
  2. COMTAN [Suspect]
     Indication: PARKINSON'S DISEASE
     Dosage: 300 MG ORAL : 500 MG ORAL : 400 MG ORAL
     Route: 048
     Dates: start: 20070719, end: 20070813
  3. COMTAN [Suspect]
     Indication: PARKINSON'S DISEASE
     Dosage: 300 MG ORAL : 500 MG ORAL : 400 MG ORAL
     Route: 048
     Dates: start: 20070813, end: 20071001

REACTIONS (4)
  - CONDITION AGGRAVATED [None]
  - DRUG INEFFECTIVE [None]
  - HALLUCINATION [None]
  - TREATMENT NONCOMPLIANCE [None]
